FAERS Safety Report 8766903 (Version 1)
Quarter: 2012Q4

REPORT INFORMATION
  Report Type: 
  Country: DK (occurrence: DK)
  Receive Date: 20120904
  Receipt Date: 20120904
  Transmission Date: 20130627
  Serious: Yes (Other)
  Sender: FDA-Public Use
  Company Number: DK-JNJFOC-20120812270

PATIENT
  Age: 54 Year
  Sex: Female

DRUGS (4)
  1. NOCORETTE FRUITMINT 4 MG GUM [Suspect]
     Indication: SMOKING CESSATION THERAPY
     Route: 048
  2. NICORETTE FRUITYMINT [Suspect]
     Indication: SMOKING CESSATION THERAPY
     Route: 048
  3. ANTIPSYCHOTIC MEDICATION [Concomitant]
     Indication: PSYCHOTIC DISORDER
     Route: 065
  4. ANTIDEPRESSANT MEDICATION [Concomitant]
     Indication: DEPRESSION
     Route: 065

REACTIONS (3)
  - Nicotine dependence [Unknown]
  - Intentional drug misuse [Unknown]
  - Drug ineffective [Unknown]
